FAERS Safety Report 21371441 (Version 1)
Quarter: 2022Q3

REPORT INFORMATION
  Report Type: Spontaneous
  Country: US (occurrence: None)
  Receive Date: 20220922
  Receipt Date: 20220922
  Transmission Date: 20221027
  Serious: Yes (Hospitalization)
  Sender: FDA-Public Use
  Company Number: None

PATIENT
  Sex: Female

DRUGS (15)
  1. LANTUS [Suspect]
     Active Substance: INSULIN GLARGINE
     Indication: Type 2 diabetes mellitus
     Dosage: OTHER QUANTITY : 100 UNIT/ML;?FREQUENCY : AS DIRECTED;?
     Route: 058
     Dates: start: 20150522
  2. LANTUS [Suspect]
     Active Substance: INSULIN GLARGINE
     Dosage: FREQUENCY : AS DIRECTED;?
     Route: 058
     Dates: start: 20150522
  3. FERROUS GLUCONATE [Concomitant]
     Active Substance: FERROUS GLUCONATE
  4. CALCIUM 600 + VIT D [Concomitant]
  5. DOCUSATE SOD [Concomitant]
  6. MAGNESIUM OXIDE [Concomitant]
     Active Substance: MAGNESIUM OXIDE
  7. NOVOLOG [Concomitant]
     Active Substance: INSULIN ASPART
  8. UNSPECIFIED INGREDIENT [Concomitant]
     Active Substance: UNSPECIFIED INGREDIENT
  9. POLYETHYLENE GLYCOLS [Concomitant]
     Active Substance: POLYETHYLENE GLYCOLS
  10. PROMETHAZINE [Concomitant]
     Active Substance: PROMETHAZINE HYDROCHLORIDE
  11. TRUE METRIX GLUCOSE TEST STRIPS [Concomitant]
  12. TRUE METRIX KIT METER [Concomitant]
  13. TRUEPLUS LANCETS [Concomitant]
  14. URSODIOL [Concomitant]
     Active Substance: URSODIOL
  15. LAMICTAL [Suspect]
     Active Substance: LAMOTRIGINE

REACTIONS (2)
  - Seizure [None]
  - Pneumonia [None]
